FAERS Safety Report 7053141-7 (Version None)
Quarter: 2010Q4

REPORT INFORMATION
  Report Type: 
  Country: None (occurrence: None)
  Receive Date: 20101020
  Receipt Date: 20101015
  Transmission Date: 20110411
  Serious: Yes (Other)
  Sender: FDA-Public Use
  Company Number: US-ASTRAZENECA-2007UW09594

PATIENT
  Age: 20137 Day
  Sex: Female
  Weight: 106.6 kg

DRUGS (36)
  1. SEROQUEL [Suspect]
     Indication: DEPRESSION
     Dosage: 25 MG TO 200 MG
     Route: 048
     Dates: start: 20001110
  2. SEROQUEL [Suspect]
     Indication: NIGHTMARE
     Dosage: 25 MG TO 200 MG
     Route: 048
     Dates: start: 20001110
  3. SEROQUEL [Suspect]
     Indication: ANXIETY
     Dosage: 25 MG TO 200 MG
     Route: 048
     Dates: start: 20001110
  4. SEROQUEL [Suspect]
     Indication: HEADACHE
     Dosage: 25 MG TO 200 MG
     Route: 048
     Dates: start: 20001110
  5. SEROQUEL [Suspect]
     Indication: INSOMNIA
     Dosage: 25 MG TO 200 MG
     Route: 048
     Dates: start: 20001110
  6. SEROQUEL [Suspect]
     Route: 048
     Dates: start: 20011101
  7. SEROQUEL [Suspect]
     Route: 048
     Dates: start: 20011101
  8. SEROQUEL [Suspect]
     Route: 048
     Dates: start: 20011101
  9. SEROQUEL [Suspect]
     Route: 048
     Dates: start: 20011101
  10. SEROQUEL [Suspect]
     Route: 048
     Dates: start: 20011101
  11. SEROQUEL [Suspect]
     Dosage: 25-300 MG
     Route: 048
     Dates: start: 20001101, end: 20070208
  12. SEROQUEL [Suspect]
     Dosage: 25-300 MG
     Route: 048
     Dates: start: 20001101, end: 20070208
  13. SEROQUEL [Suspect]
     Dosage: 25-300 MG
     Route: 048
     Dates: start: 20001101, end: 20070208
  14. SEROQUEL [Suspect]
     Dosage: 25-300 MG
     Route: 048
     Dates: start: 20001101, end: 20070208
  15. SEROQUEL [Suspect]
     Dosage: 25-300 MG
     Route: 048
     Dates: start: 20001101, end: 20070208
  16. SERZONE [Concomitant]
     Route: 048
     Dates: start: 20011019
  17. SERZONE [Concomitant]
     Dosage: 100-250 MG
     Route: 048
     Dates: start: 20000101, end: 20020101
  18. REMERON [Concomitant]
     Dosage: 15 MG TO 30 MG
     Route: 048
     Dates: start: 19971029
  19. TENORMIN [Concomitant]
     Indication: HYPERTENSION
     Dates: start: 19850101
  20. SYNTHROID [Concomitant]
     Indication: HYPOTHYROIDISM
     Dates: start: 19920101
  21. SYNTHROID [Concomitant]
     Dates: start: 20020901
  22. ELAVIL [Concomitant]
     Indication: FIBROMYALGIA
     Dates: start: 19971029
  23. ELAVIL [Concomitant]
     Dosage: 50-100MG
     Dates: start: 20010101
  24. ZYPREXA [Concomitant]
     Route: 048
     Dates: start: 20011019
  25. PAXIL CR [Concomitant]
     Route: 048
     Dates: start: 20020910
  26. PAXIL CR [Concomitant]
     Dosage: 25-37.5 MG
     Dates: start: 20020101, end: 20060101
  27. EFFEXOR XR [Concomitant]
     Route: 048
     Dates: start: 20020529
  28. EFFEXOR XR [Concomitant]
     Dates: start: 20040101
  29. ATENOLOL [Concomitant]
     Indication: HYPERTENSION
     Dates: start: 20020901
  30. HYDROCHLOROTHIAZIDE [Concomitant]
     Indication: HYPERTENSION
     Dates: start: 20020901
  31. TRAZODONE HCL [Concomitant]
     Dates: start: 20010101
  32. DEPAKOTE [Concomitant]
     Dates: start: 20010101, end: 20020101
  33. LORAZEPAM [Concomitant]
     Dates: start: 20010101
  34. WELLBUTRIN [Concomitant]
     Dates: start: 20060101
  35. LEXAPRO [Concomitant]
  36. XANAX [Concomitant]
     Dosage: 0.5-1 MG
     Dates: start: 20020101, end: 20050101

REACTIONS (5)
  - BLOOD CHOLESTEROL INCREASED [None]
  - HYPERGLYCAEMIA [None]
  - HYPERLIPIDAEMIA [None]
  - NEUROPATHY PERIPHERAL [None]
  - TYPE 2 DIABETES MELLITUS [None]
